FAERS Safety Report 6893191-4 (Version None)
Quarter: 2010Q3

REPORT INFORMATION
  Report Type: 
  Country: None (occurrence: None)
  Receive Date: 20100731
  Receipt Date: 20090616
  Transmission Date: 20110219
  Serious: No
  Sender: FDA-Public Use
  Company Number: US-PFIZER INC-2008035884

PATIENT
  Sex: Male
  Weight: 104 kg

DRUGS (2)
  1. CAVERJECT [Suspect]
     Dosage: UNK
     Dates: start: 20070101
  2. VALSARTAN [Concomitant]
     Indication: HYPERTENSION

REACTIONS (1)
  - DRUG INEFFECTIVE [None]
